FAERS Safety Report 17551675 (Version 1)
Quarter: 2020Q1

REPORT INFORMATION
  Report Type: Spontaneous
  Country: JP (occurrence: JP)
  Receive Date: 20200317
  Receipt Date: 20200317
  Transmission Date: 20200409
  Serious: Yes (Other)
  Sender: FDA-Public Use
  Company Number: JP-JNJFOC-20181103109

PATIENT

DRUGS (4)
  1. ITRIZOLE [Suspect]
     Active Substance: ITRACONAZOLE
     Indication: GASTRIC CANCER
     Route: 048
  2. OXALIPLATIN. [Suspect]
     Active Substance: OXALIPLATIN
     Indication: GASTRIC CANCER
     Route: 042
  3. ABRAXANE [Suspect]
     Active Substance: PACLITAXEL
     Indication: GASTRIC CANCER
     Route: 042
  4. TS-1 [Suspect]
     Active Substance: GIMERACIL\OTERACIL\TEGAFUR
     Indication: GASTRIC CANCER
     Route: 048

REACTIONS (6)
  - Febrile neutropenia [Recovered/Resolved]
  - Neuropathy peripheral [Unknown]
  - Off label use [Unknown]
  - Product use in unapproved indication [Unknown]
  - Neutropenia [Unknown]
  - Gastric haemorrhage [Unknown]
